FAERS Safety Report 8874834 (Version 1)
Quarter: 2012Q4

REPORT INFORMATION
  Report Type: 
  Country: US (occurrence: US)
  Receive Date: 20121023
  Receipt Date: 20121023
  Transmission Date: 20130627
  Serious: No
  Sender: FDA-Public Use
  Company Number: US-PFIZER INC-2012260072

PATIENT
  Age: 41 Year
  Sex: Female
  Weight: 81.63 kg

DRUGS (1)
  1. LEVOXYL [Suspect]
     Indication: HYPOTHYROIDISM
     Dosage: 87.5 ug (three and half tablets of 25 mcg), 1x/day
     Route: 048
     Dates: start: 20121012

REACTIONS (2)
  - Rash generalised [Unknown]
  - Urticaria [Unknown]
